FAERS Safety Report 6668975-8 (Version None)
Quarter: 2010Q2

REPORT INFORMATION
  Report Type: 
  Country: None (occurrence: None)
  Receive Date: 20100402
  Receipt Date: 20100318
  Transmission Date: 20101027
  Serious: Yes (Hospitalization)
  Sender: FDA-Public Use
  Company Number: A-CH2010-34402

PATIENT
  Age: 64 Year
  Sex: Male

DRUGS (3)
  1. TRACLEER [Suspect]
     Indication: INTERSTITIAL LUNG DISEASE
     Dosage: 125 MG, BID, ORAL ; 62.5 MG, BID, ORAL
     Route: 048
     Dates: start: 20090617, end: 20090710
  2. TRACLEER [Suspect]
     Indication: INTERSTITIAL LUNG DISEASE
     Dosage: 125 MG, BID, ORAL ; 62.5 MG, BID, ORAL
     Route: 048
     Dates: start: 20090727, end: 20100115
  3. .. [Concomitant]

REACTIONS (3)
  - HEPATITIS ACUTE [None]
  - OFF LABEL USE [None]
  - PYREXIA [None]
